FAERS Safety Report 5146286-X (Version None)
Quarter: 2006Q4

REPORT INFORMATION
  Report Type: 
  Country: None (occurrence: None)
  Receive Date: 20061102
  Receipt Date: 20061027
  Transmission Date: 20070319
  Serious: Yes (Other)
  Sender: FDA-Public Use
  Company Number: GBWYE724213JUN06

PATIENT
  Age: 47 Year
  Sex: Male

DRUGS (2)
  1. EFFEXOR [Suspect]
     Dosage: SEE IMAGE
     Dates: start: 20051001, end: 20050101
  2. EFFEXOR [Suspect]
     Dosage: SEE IMAGE
     Dates: end: 20051001

REACTIONS (7)
  - BALANCE DISORDER [None]
  - CHEST PAIN [None]
  - DRUG WITHDRAWAL SYNDROME [None]
  - HEARING IMPAIRED [None]
  - PANIC REACTION [None]
  - TINNITUS [None]
  - VERTIGO [None]
